FAERS Safety Report 16203205 (Version 1)
Quarter: 2019Q2

REPORT INFORMATION
  Report Type: Spontaneous
  Country: CA (occurrence: CA)
  Receive Date: 20190416
  Receipt Date: 20190416
  Transmission Date: 20190711
  Serious: Yes (Other)
  Sender: FDA-Public Use
  Company Number: CA-JNJFOC-20190410060

PATIENT
  Sex: Male

DRUGS (1)
  1. RISPERDAL [Suspect]
     Active Substance: RISPERIDONE
     Indication: VASCULAR DEMENTIA
     Route: 065
     Dates: start: 201803, end: 201811

REACTIONS (4)
  - General physical health deterioration [Recovering/Resolving]
  - Off label use [Unknown]
  - Impaired self-care [Recovering/Resolving]
  - Product use in unapproved indication [Unknown]
